FAERS Safety Report 11376330 (Version 1)
Quarter: 2015Q3

REPORT INFORMATION
  Report Type: Spontaneous
  Country: US (occurrence: US)
  Receive Date: 20150813
  Receipt Date: 20150813
  Transmission Date: 20151125
  Serious: No
  Sender: FDA-Public Use
  Company Number: US-PFIZER INC-2015265981

PATIENT
  Age: 58 Year
  Sex: Female
  Weight: 77 kg

DRUGS (1)
  1. LYRICA [Suspect]
     Active Substance: PREGABALIN
     Indication: CARPAL TUNNEL SYNDROME
     Dosage: 400 MG, 1X/DAY (EVERY NIGHT)

REACTIONS (5)
  - Yawning [Unknown]
  - Pain in extremity [Unknown]
  - Hypoaesthesia [Unknown]
  - Neurological symptom [Unknown]
  - Eye disorder [Unknown]
